FAERS Safety Report 6708032-5 (Version None)
Quarter: 2010Q2

REPORT INFORMATION
  Report Type: 
  Country: None (occurrence: None)
  Receive Date: 20100503
  Receipt Date: 20090522
  Transmission Date: 20101027
  Serious: Yes (Other)
  Sender: FDA-Public Use
  Company Number: US-BAYER-200919902NA

PATIENT
  Age: 36 Year
  Sex: Female

DRUGS (2)
  1. BETASERON [Suspect]
     Indication: RELAPSING-REMITTING MULTIPLE SCLEROSIS
     Dosage: BETAJECT
     Route: 058
     Dates: start: 20090413
  2. BETASERON [Suspect]
     Dosage: BETAJECT
     Route: 058

REACTIONS (5)
  - DYSPHAGIA [None]
  - HYPERPHAGIA [None]
  - JOINT STIFFNESS [None]
  - PHARYNGEAL OEDEMA [None]
  - TONGUE DISORDER [None]
